FAERS Safety Report 5084747-2 (Version None)
Quarter: 2006Q3

REPORT INFORMATION
  Report Type: 
  Country: None (occurrence: None)
  Receive Date: 20060821
  Receipt Date: 20060407
  Transmission Date: 20061208
  Serious: Yes (Life-Threatening, Hospitalization)
  Sender: FDA-Public Use
  Company Number: DE-BRACCO-BRO-009955

PATIENT
  Sex: Female

DRUGS (7)
  1. MULTIHANCE [Suspect]
     Route: 042
     Dates: start: 20060331, end: 20060331
  2. MULTIHANCE [Suspect]
     Route: 042
     Dates: start: 20060331, end: 20060331
  3. MULTIHANCE [Suspect]
     Indication: NUCLEAR MAGNETIC RESONANCE IMAGING ABDOMINAL
     Route: 042
     Dates: start: 20060331, end: 20060331
  4. PANTOZOL [Concomitant]
     Route: 048
  5. LACTULOSE [Concomitant]
     Route: 048
  6. VESDIL [Concomitant]
     Route: 048
  7. BELOC ZOK [Concomitant]
     Route: 048

REACTIONS (1)
  - ANAPHYLACTIC SHOCK [None]
